FAERS Safety Report 5679595-6 (Version None)
Quarter: 2008Q1

REPORT INFORMATION
  Report Type: 
  Country: None (occurrence: None)
  Receive Date: 20080321
  Receipt Date: 20080310
  Transmission Date: 20080703
  Serious: Yes (Hospitalization)
  Sender: FDA-Public Use
  Company Number: FABR-1000129

PATIENT
  Age: 45 Year

DRUGS (1)
  1. FABRAZYME [Suspect]
     Indication: FABRY'S DISEASE
     Dosage: INTRAVENOUS
     Route: 042
     Dates: start: 20080220, end: 20080306

REACTIONS (2)
  - INFUSION RELATED REACTION [None]
  - SHOCK [None]
